FAERS Safety Report 16126572 (Version 1)
Quarter: 2019Q1

REPORT INFORMATION
  Report Type: Spontaneous
  Country: US (occurrence: US)
  Receive Date: 20190222
  Receipt Date: 20190222
  Transmission Date: 20190418
  Serious: No
  Sender: FDA-Public Use
  Company Number: None

PATIENT
  Age: 72 Year
  Sex: Female
  Weight: 53.52 kg

DRUGS (8)
  1. EFUDEX [Suspect]
     Active Substance: FLUOROURACIL
     Indication: SKIN CANCER
  2. CELEXA [Concomitant]
     Active Substance: CITALOPRAM HYDROBROMIDE
  3. SPECIAL CREAMS [Concomitant]
  4. CRESTOR [Concomitant]
     Active Substance: ROSUVASTATIN CALCIUM
  5. ALLERGY MEDS [Concomitant]
  6. STEROIDS [Concomitant]
     Active Substance: UNSPECIFIED INGREDIENT
  7. CORTISON [Concomitant]
     Active Substance: CORTISONE ACETATE
  8. VITAMIN D3 [Concomitant]
     Active Substance: CHOLECALCIFEROL

REACTIONS (2)
  - Skin lesion [None]
  - Rash generalised [None]

NARRATIVE: CASE EVENT DATE: 20180311
